APPROVED DRUG PRODUCT: TROSPIUM CHLORIDE
Active Ingredient: TROSPIUM CHLORIDE
Strength: 20MG
Dosage Form/Route: TABLET;ORAL
Application: A206472 | Product #001 | TE Code: AB
Applicant: MACLEODS PHARMACEUTICALS LTD
Approved: Jun 18, 2024 | RLD: No | RS: No | Type: RX